FAERS Safety Report 5353105-5 (Version None)
Quarter: 2007Q2

REPORT INFORMATION
  Report Type: 
  Country: None (occurrence: None)
  Receive Date: 20070611
  Receipt Date: 20070530
  Transmission Date: 20071010
  Serious: Yes (Other)
  Sender: FDA-Public Use
  Company Number: US-PFIZER INC-2007045401

PATIENT
  Sex: Female
  Weight: 49.4 kg

DRUGS (2)
  1. NEURONTIN [Suspect]
     Indication: NEUROPATHY
  2. ESTRADERM [Concomitant]

REACTIONS (2)
  - IMPAIRED WORK ABILITY [None]
  - SOMNOLENCE [None]
